FAERS Safety Report 21986327 (Version 2)
Quarter: 2023Q1

REPORT INFORMATION
  Report Type: Spontaneous
  Country: JP (occurrence: JP)
  Receive Date: 20230213
  Receipt Date: 20230303
  Transmission Date: 20230418
  Serious: Yes (Other)
  Sender: FDA-Public Use
  Company Number: JP-Merck Healthcare KGaA-9380877

PATIENT
  Age: 44 Year
  Sex: Female
  Weight: 45 kg

DRUGS (3)
  1. ERBITUX [Suspect]
     Active Substance: CETUXIMAB
     Indication: Oral cavity cancer metastatic
     Dosage: 400 MG/M2, UNK
     Route: 041
     Dates: start: 20201228
  2. ERBITUX [Suspect]
     Active Substance: CETUXIMAB
     Dosage: 250 MG/M2, UNK
     Route: 041
     Dates: start: 20210104
  3. PACLITAXEL [Concomitant]
     Active Substance: PACLITAXEL
     Indication: Oral cavity cancer metastatic
     Dosage: 80 MG/M2, UNK
     Route: 065

REACTIONS (1)
  - Fistula [Recovered/Resolved]

NARRATIVE: CASE EVENT DATE: 20210111
